FAERS Safety Report 7084137-7 (Version None)
Quarter: 2010Q4

REPORT INFORMATION
  Report Type: 
  Country: None (occurrence: None)
  Receive Date: 20101104
  Receipt Date: 20100325
  Transmission Date: 20110411
  Serious: Yes (Hospitalization, Other)
  Sender: FDA-Public Use
  Company Number: US-BAYER-201017213NA

PATIENT
  Age: 30 Year
  Sex: Female
  Weight: 66 kg

DRUGS (12)
  1. YAZ [Suspect]
     Indication: PRODUCT USED FOR UNKNOWN INDICATION
     Route: 048
     Dates: start: 20040301, end: 20040701
  2. YASMIN [Suspect]
     Indication: CONTRACEPTION
     Route: 048
     Dates: start: 20040301, end: 20040701
  3. DROSPIRENONE AND ETHINYL ESTRADIOL [Suspect]
     Indication: PRODUCT USED FOR UNKNOWN INDICATION
     Route: 048
     Dates: start: 20040301, end: 20040701
  4. ATIVAN [Concomitant]
     Route: 042
  5. DILAUDID [Concomitant]
     Route: 042
  6. ANZEMET [Concomitant]
     Route: 042
  7. BICARB INFUSION [Concomitant]
     Indication: PROPHYLAXIS
  8. NORMAL SALINE [Concomitant]
  9. COUMADIN [Concomitant]
  10. PERCOCET [Concomitant]
     Indication: PAIN
     Dosage: 1-2 TABLETS Q 4 HOURS
     Route: 048
  11. SENNA [Concomitant]
     Indication: CONSTIPATION
     Dosage: 1-2 TABLETS
     Route: 048
  12. MILK OF MAGNESIA TAB [Concomitant]
     Indication: CONSTIPATION
     Dosage: 30 ML
     Route: 048

REACTIONS (7)
  - ABDOMINAL PAIN UPPER [None]
  - BACK PAIN [None]
  - CHEST DISCOMFORT [None]
  - CHEST PAIN [None]
  - CONSTIPATION [None]
  - ESCHERICHIA URINARY TRACT INFECTION [None]
  - PULMONARY EMBOLISM [None]
